FAERS Safety Report 24759125 (Version 1)
Quarter: 2024Q4

REPORT INFORMATION
  Report Type: Spontaneous
  Country: GB (occurrence: GB)
  Receive Date: 20241220
  Receipt Date: 20241220
  Transmission Date: 20250114
  Serious: Yes (Life-Threatening, Other)
  Sender: ELI LILLY AND COMPANY
  Company Number: GB-MHRA-EMIS-4197-f93a3f67-736b-4491-9696-fbfebb6dae37

PATIENT
  Age: 54 Year
  Sex: Female
  Weight: 127 kg

DRUGS (4)
  1. MOUNJARO [Suspect]
     Active Substance: TIRZEPATIDE
     Indication: Product used for unknown indication
     Dosage: 2.5 MG, WEEKLY (1/W)
     Route: 058
     Dates: start: 20241108, end: 20241205
  2. OZEMPIC [Concomitant]
     Active Substance: SEMAGLUTIDE
     Indication: Type 2 diabetes mellitus
     Dosage: INJECT ONE DOSE SUBCUTANEOUSLY ONCE EACH WEEK
     Dates: start: 20241009, end: 20241113
  3. ATORVASTATIN [Concomitant]
     Active Substance: ATORVASTATIN
     Indication: Type IIa hyperlipidaemia
     Dosage: TAKE ONE TABLET AT NIGHT
     Dates: start: 20241108
  4. LEVOTHYROXINE [Concomitant]
     Active Substance: LEVOTHYROXINE
     Indication: Hypothyroidism
     Dosage: ONE TO BE TAKEN EACH MORNING 30-60 MINUTES BEFORE BREAKFAST
     Dates: start: 20241108

REACTIONS (2)
  - Suicidal ideation [Recovering/Resolving]
  - Depressed mood [Not Recovered/Not Resolved]

NARRATIVE: CASE EVENT DATE: 20241108
